FAERS Safety Report 22140468 (Version 1)
Quarter: 2023Q1

REPORT INFORMATION
  Report Type: Spontaneous
  Country: US (occurrence: None)
  Receive Date: 20230324
  Receipt Date: 20230324
  Transmission Date: 20230417
  Serious: No
  Sender: FDA-Public Use
  Company Number: None

PATIENT
  Sex: 0

DRUGS (1)
  1. AUBAGIO [Suspect]
     Active Substance: TERIFLUNOMIDE

REACTIONS (7)
  - Central nervous system lesion [None]
  - Spinal disorder [None]
  - Alopecia [None]
  - Hypoaesthesia [None]
  - Paraesthesia [None]
  - Musculoskeletal disorder [None]
  - Wheelchair user [None]
